FAERS Safety Report 5653191-9 (Version None)
Quarter: 2008Q1

REPORT INFORMATION
  Report Type: 
  Country: None (occurrence: None)
  Receive Date: 20080306
  Receipt Date: 20080226
  Transmission Date: 20080703
  Serious: Yes (Hospitalization, Other)
  Sender: FDA-Public Use
  Company Number: CA-ABBOTT-08P-028-0440203-00

PATIENT
  Age: 21 Year
  Sex: Female
  Weight: 97 kg

DRUGS (10)
  1. WARFARIN SODIUM [Suspect]
     Indication: DEEP VEIN THROMBOSIS
  2. WARFARIN SODIUM [Suspect]
     Indication: HYPERCOAGULATION
     Dosage: 10-50 MG/DAY
  3. WARFARIN SODIUM [Suspect]
  4. WARFARIN SODIUM [Suspect]
  5. WARFARIN SODIUM [Suspect]
  6. WARFARIN SODIUM [Suspect]
  7. WARFARIN SODIUM [Suspect]
  8. SUMATRIPTAN SUCCINATE [Concomitant]
     Indication: DRUG USE FOR UNKNOWN INDICATION
     Route: 048
  9. UNFRACTIONATED HEPARIN [Concomitant]
     Indication: DEEP VEIN THROMBOSIS
     Route: 058
  10. ENOXAPARIN OR TINZAPARIN [Concomitant]
     Indication: DEEP VEIN THROMBOSIS
     Dosage: WHEN INR LESS THAN 2.0, UNDER MD SUPERVISION

REACTIONS (4)
  - DEEP VEIN THROMBOSIS [None]
  - DRUG RESISTANCE [None]
  - INTERNATIONAL NORMALISED RATIO DECREASED [None]
  - TREATMENT NONCOMPLIANCE [None]
